FAERS Safety Report 7956818-1 (Version None)
Quarter: 2011Q4

REPORT INFORMATION
  Report Type: 
  Country: None (occurrence: None)
  Receive Date: 20111205
  Receipt Date: 20111010
  Transmission Date: 20120403
  Serious: No
  Sender: FDA-Public Use
  Company Number: US-BAYER-2011-099114

PATIENT

DRUGS (4)
  1. ALEVE (CAPLET) [Suspect]
     Indication: MYALGIA
  2. IMITREX [Concomitant]
  3. ALEVE (CAPLET) [Suspect]
     Indication: MIGRAINE
  4. ALEVE (CAPLET) [Suspect]
     Indication: PRODUCT USED FOR UNKNOWN INDICATION

REACTIONS (1)
  - MYALGIA [None]
